FAERS Safety Report 14178414 (Version 1)
Quarter: 2017Q4

REPORT INFORMATION
  Report Type: Spontaneous
  Country: US (occurrence: US)
  Receive Date: 20171111
  Receipt Date: 20171111
  Transmission Date: 20180321
  Serious: Yes (Other)
  Sender: FDA-Public Use
  Company Number: US-GLENMARK PHARMACEUTICALS-2017GMK029673

PATIENT
  Age: 48 Year
  Sex: Male

DRUGS (14)
  1. CEFTAZIDIME. [Concomitant]
     Active Substance: CEFTAZIDIME
     Indication: EYE SWELLING
     Dosage: UNK
     Route: 031
  2. VORICONAZOLE. [Concomitant]
     Active Substance: VORICONAZOLE
     Indication: EYE SWELLING
     Route: 031
  3. PREDNISONE. [Concomitant]
     Active Substance: PREDNISONE
     Indication: IMMUNOSUPPRESSANT DRUG THERAPY
     Route: 065
  4. AMIKACIN [Concomitant]
     Active Substance: AMIKACIN
     Indication: ERYTHEMA OF EYELID
  5. AMIKACIN [Concomitant]
     Active Substance: AMIKACIN
     Indication: EYE SWELLING
     Route: 031
  6. SULFAMETHOXAZOLE/TRIMETHOPRIM [Suspect]
     Active Substance: SULFAMETHOXAZOLE\TRIMETHOPRIM
     Indication: NOCARDIOSIS
     Route: 065
  7. TACROLIMUS. [Concomitant]
     Active Substance: TACROLIMUS
     Indication: IMMUNOSUPPRESSANT DRUG THERAPY
     Route: 065
  8. FOSCARNET [Concomitant]
     Active Substance: FOSCARNET
     Indication: EYE SWELLING
     Route: 031
  9. VANCOMYCIN [Concomitant]
     Active Substance: VANCOMYCIN
     Indication: ERYTHEMA OF EYELID
  10. CEFTAZIDIME. [Concomitant]
     Active Substance: CEFTAZIDIME
     Indication: ERYTHEMA OF EYELID
  11. VANCOMYCIN [Concomitant]
     Active Substance: VANCOMYCIN
     Indication: EYE SWELLING
     Route: 031
  12. VORICONAZOLE. [Concomitant]
     Active Substance: VORICONAZOLE
     Indication: ERYTHEMA OF EYELID
  13. FOSCARNET [Concomitant]
     Active Substance: FOSCARNET
     Indication: ERYTHEMA OF EYELID
  14. CEFTRIAXONE. [Concomitant]
     Active Substance: CEFTRIAXONE
     Indication: NOCARDIOSIS
     Route: 065

REACTIONS (4)
  - Hypotension [Unknown]
  - Vomiting [Unknown]
  - Acute kidney injury [Unknown]
  - Nausea [Unknown]
